FAERS Safety Report 18174140 (Version 1)
Quarter: 2020Q3

REPORT INFORMATION
  Report Type: Other
  Country: CA (occurrence: CA)
  Receive Date: 20200820
  Receipt Date: 20200820
  Transmission Date: 20201103
  Serious: Yes (Hospitalization, Other)
  Sender: FDA-Public Use
  Company Number: CA-CELLTRION INC.-2020CA025310

PATIENT

DRUGS (10)
  1. PACLITAXEL. [Suspect]
     Active Substance: PACLITAXEL
     Indication: BREAST CANCER
     Dosage: 80 MG/M2, 1 EVERY 7 DAYS
     Route: 042
  2. PERINDOPRIL [Concomitant]
     Active Substance: PERINDOPRIL
  3. CYCLOPHOSPHAMIDE. [Suspect]
     Active Substance: CYCLOPHOSPHAMIDE
     Indication: BREAST CANCER
     Dosage: 600 MG/M2, 1 EVERY 14 DAYS
     Route: 042
  4. BISOPROLOL [Concomitant]
     Active Substance: BISOPROLOL
  5. TRASTUZUMAB (UNKNOWN) [Suspect]
     Active Substance: TRASTUZUMAB
     Indication: BREAST CANCER
     Dosage: 6.0 MG/KG, EVERY 21 DAYS
     Route: 042
  6. ROSUVASTATIN. [Concomitant]
     Active Substance: ROSUVASTATIN
  7. AMLODIPINE [Concomitant]
     Active Substance: AMLODIPINE BESYLATE
  8. LETROZOLE. [Concomitant]
     Active Substance: LETROZOLE
  9. TRASTUZUMAB (UNKNOWN) [Suspect]
     Active Substance: TRASTUZUMAB
     Dosage: 4 MG/KG
     Route: 042
  10. DOXORUBICIN INJECTION [Suspect]
     Active Substance: DOXORUBICIN
     Indication: BREAST CANCER
     Dosage: 60 MG/M2, 1 EVERY 14 DAYS
     Route: 042

REACTIONS (4)
  - Ejection fraction decreased [Unknown]
  - Ischaemia [Unknown]
  - Arteriosclerosis [Unknown]
  - Cardiac disorder [Unknown]
